FAERS Safety Report 6369323-3 (Version None)
Quarter: 2009Q3

REPORT INFORMATION
  Report Type: 
  Country: None (occurrence: None)
  Receive Date: 20090916
  Receipt Date: 20090901
  Transmission Date: 20100115
  Serious: Yes (Death, Hospitalization)
  Sender: FDA-Public Use
  Company Number: 000839

PATIENT
  Sex: Male

DRUGS (1)
  1. VIMPAT [Suspect]
     Dates: start: 20081001

REACTIONS (15)
  - ACUTE CORONARY SYNDROME [None]
  - ATRIAL FLUTTER [None]
  - CONDUCTION DISORDER [None]
  - CYSTITIS KLEBSIELLA [None]
  - DEHYDRATION [None]
  - DENGUE FEVER [None]
  - DYSPHAGIA [None]
  - ENCEPHALOPATHY [None]
  - GENERAL PHYSICAL HEALTH DETERIORATION [None]
  - GRAND MAL CONVULSION [None]
  - HYPERTONIA [None]
  - MALARIA [None]
  - PNEUMONIA [None]
  - SOMNOLENCE [None]
  - SPLENIC HAEMATOMA [None]
